FAERS Safety Report 13572352 (Version 1)
Quarter: 2017Q2

REPORT INFORMATION
  Report Type: Spontaneous
  Country: US (occurrence: US)
  Receive Date: 20170523
  Receipt Date: 20170523
  Transmission Date: 20170830
  Serious: Yes (Hospitalization)
  Sender: FDA-Public Use
  Company Number: US-JNJFOC-20170322398

PATIENT
  Age: 93 Year
  Sex: Female
  Weight: 49 kg

DRUGS (5)
  1. IMBRUVICA [Suspect]
     Active Substance: IBRUTINIB
     Indication: CHRONIC LYMPHOCYTIC LEUKAEMIA
     Route: 048
     Dates: start: 2016
  2. LEVOTHYROXINE. [Concomitant]
     Active Substance: LEVOTHYROXINE
     Indication: THYROID DISORDER
  3. ATORVASTATIN [Concomitant]
     Active Substance: ATORVASTATIN
     Indication: BLOOD CHOLESTEROL INCREASED
  4. FLUCONAZOLE. [Concomitant]
     Active Substance: FLUCONAZOLE
     Indication: FUNGAL INFECTION
  5. ASPIRIN. [Concomitant]
     Active Substance: ASPIRIN
     Indication: CARDIAC DISORDER

REACTIONS (5)
  - Bronchitis [Recovered/Resolved]
  - Viral upper respiratory tract infection [Recovered/Resolved]
  - Incorrect dose administered [Not Recovered/Not Resolved]
  - Pneumonia [Recovered/Resolved]
  - Off label use [Not Recovered/Not Resolved]

NARRATIVE: CASE EVENT DATE: 2016
